FAERS Safety Report 6867592-4 (Version None)
Quarter: 2010Q3

REPORT INFORMATION
  Report Type: 
  Country: None (occurrence: None)
  Receive Date: 20100722
  Receipt Date: 20090623
  Transmission Date: 20110219
  Serious: No
  Sender: FDA-Public Use
  Company Number: US-BAUSCH-2009BL003105

PATIENT
  Age: 53 Year
  Sex: Female

DRUGS (1)
  1. OPCON-A [Suspect]
     Indication: EYE ALLERGY
     Route: 047
     Dates: start: 20090301, end: 20090621

REACTIONS (3)
  - DRY EYE [None]
  - EYELID MARGIN CRUSTING [None]
  - MEIBOMIAN GLAND DYSFUNCTION [None]
